FAERS Safety Report 9484731 (Version 1)
Quarter: 2013Q3

REPORT INFORMATION
  Report Type: Spontaneous
  Country: US (occurrence: US)
  Receive Date: 20130828
  Receipt Date: 20130828
  Transmission Date: 20140515
  Serious: Yes (Other)
  Sender: FDA-Public Use
  Company Number: US-AMGEN-KDL443906

PATIENT
  Age: 73 Year
  Sex: Female

DRUGS (2)
  1. ENBREL [Suspect]
     Indication: RHEUMATOID ARTHRITIS
     Dosage: 50 MG, QWK
     Route: 058
     Dates: start: 20010601
  2. METHOTREXATE [Concomitant]

REACTIONS (8)
  - Pulmonary mass [Unknown]
  - Carpal tunnel syndrome [Recovered/Resolved]
  - Exostosis [Recovered/Resolved]
  - Foot deformity [Recovered/Resolved]
  - Extremity contracture [Not Recovered/Not Resolved]
  - Asthenia [Unknown]
  - Pain in extremity [Not Recovered/Not Resolved]
  - Nodule [Not Recovered/Not Resolved]
